FAERS Safety Report 7792478-0 (Version None)
Quarter: 2011Q4

REPORT INFORMATION
  Report Type: 
  Country: None (occurrence: None)
  Receive Date: 20111003
  Receipt Date: 20110928
  Transmission Date: 20120403
  Serious: Yes (Disabling, Other)
  Sender: FDA-Public Use
  Company Number: US-PFIZER INC-2011143870

PATIENT
  Sex: Female

DRUGS (13)
  1. LEXAPRO [Concomitant]
     Indication: DEPRESSION
     Dosage: UNK
     Dates: start: 20040101, end: 20090101
  2. LEXAPRO [Concomitant]
     Indication: ANXIETY
  3. RISPERDAL [Concomitant]
     Indication: DEPRESSION
  4. CHANTIX [Suspect]
     Dosage: STARTER AND CONTINUING PACK
     Dates: start: 20071107, end: 20080108
  5. CHANTIX [Suspect]
     Dosage: STARTER AND CONTINUING PACK
     Dates: start: 20090211, end: 20090311
  6. PROZAC [Concomitant]
     Indication: DEPRESSION
     Dosage: UNK
     Dates: start: 20060101, end: 20080101
  7. RISPERDAL [Concomitant]
     Indication: BIPOLAR DISORDER
     Dosage: UNK
     Dates: start: 20040101, end: 20100101
  8. CHANTIX [Suspect]
     Dosage: STARTER AND CONTINUING PACK
     Dates: start: 20091115, end: 20100202
  9. PROZAC [Concomitant]
     Indication: ANXIETY
  10. CHANTIX [Suspect]
     Indication: SMOKING CESSATION THERAPY
     Dosage: CONTINIUING PACKS
     Dates: start: 20070601, end: 20070817
  11. ZYPREXA [Concomitant]
     Indication: ANXIETY
  12. ZYPREXA [Concomitant]
     Indication: BIPOLAR DISORDER
     Dosage: UNK
     Dates: start: 20050101, end: 20071201
  13. ZYPREXA [Concomitant]
     Indication: DEPRESSION

REACTIONS (7)
  - MENTAL DISORDER [None]
  - INSOMNIA [None]
  - ATTENTION DEFICIT/HYPERACTIVITY DISORDER [None]
  - BIPOLAR DISORDER [None]
  - SUICIDAL IDEATION [None]
  - DEPRESSION [None]
  - ANXIETY [None]
